FAERS Safety Report 16931975 (Version 1)
Quarter: 2019Q4

REPORT INFORMATION
  Report Type: Report from Study
  Country: HN (occurrence: HN)
  Receive Date: 20191017
  Receipt Date: 20191017
  Transmission Date: 20200122
  Serious: Yes (Other)
  Sender: FDA-Public Use
  Company Number: NVSC2019HN002759

PATIENT
  Age: 53 Year
  Sex: Male

DRUGS (1)
  1. VYMADA [Suspect]
     Active Substance: SACUBITRIL\VALSARTAN
     Indication: PRODUCT USED FOR UNKNOWN INDICATION
     Dosage: 50 MG
     Route: 065

REACTIONS (6)
  - Cardiac disorder [Unknown]
  - Pneumonia [Unknown]
  - Influenza [Unknown]
  - Agitation [Unknown]
  - Pain [Unknown]
  - Malaise [Unknown]
